FAERS Safety Report 18014837 (Version 1)
Quarter: 2020Q3

REPORT INFORMATION
  Report Type: Spontaneous
  Country: CZ (occurrence: CZ)
  Receive Date: 20200713
  Receipt Date: 20200713
  Transmission Date: 20201103
  Serious: Yes (Death, Life-Threatening, Hospitalization, Disabling, Other)
  Sender: FDA-Public Use
  Company Number: CZ-SA-2020SA177189

PATIENT

DRUGS (4)
  1. IBALGIN [Concomitant]
     Active Substance: IBUPROFEN
     Indication: LYMPHADENOPATHY
  2. MYOZYME [Suspect]
     Active Substance: ALGLUCOSIDASE ALFA
     Indication: GLYCOGEN STORAGE DISEASE TYPE II
     Dosage: 19.8 MG/KG, QOW
     Route: 041
     Dates: start: 20130520
  3. IBALGIN [Concomitant]
     Active Substance: IBUPROFEN
     Indication: PAIN
     Dosage: 400 MG, TID
     Route: 065
     Dates: start: 20170311
  4. RELVAR ELLIPTA [FLUTICASONE FUROATE;VILANTEROL TRIFENATATE] [Concomitant]
     Active Substance: FLUTICASONE FUROATE\VILANTEROL TRIFENATATE
     Indication: HYPOVENTILATION
     Dosage: 92/22 MG, QD
     Route: 065
     Dates: start: 20150202

REACTIONS (1)
  - Oropharyngeal cancer [Fatal]

NARRATIVE: CASE EVENT DATE: 20170531
